FAERS Safety Report 7439419-3 (Version None)
Quarter: 2011Q2

REPORT INFORMATION
  Report Type: 
  Country: None (occurrence: None)
  Receive Date: 20110427
  Receipt Date: 20110419
  Transmission Date: 20111010
  Serious: Yes (Hospitalization)
  Sender: FDA-Public Use
  Company Number: US-ASTELLAS-2011US001645

PATIENT
  Sex: Female

DRUGS (1)
  1. VIBATIV [Suspect]
     Indication: CELLULITIS
     Dosage: UNK
     Route: 065

REACTIONS (2)
  - RASH [None]
  - PYREXIA [None]
